FAERS Safety Report 23885640 (Version 1)
Quarter: 2024Q2

REPORT INFORMATION
  Report Type: Spontaneous
  Country: US (occurrence: US)
  Receive Date: 20240522
  Receipt Date: 20240522
  Transmission Date: 20240715
  Serious: Yes (Other)
  Sender: FDA-Public Use
  Company Number: US-BAYER-2024A072782

PATIENT
  Age: 15 Year
  Sex: Female

DRUGS (1)
  1. MIRENA [Suspect]
     Active Substance: LEVONORGESTREL
     Indication: Contraception
     Dosage: 20?G/DAY
     Route: 015
     Dates: start: 20240424, end: 20240424

REACTIONS (4)
  - Uterine perforation [None]
  - Procedural pain [None]
  - Exposure to contaminated device [None]
  - Complication of device insertion [None]

NARRATIVE: CASE EVENT DATE: 20240424
